FAERS Safety Report 6355935-X (Version None)
Quarter: 2009Q3

REPORT INFORMATION
  Report Type: 
  Country: None (occurrence: None)
  Receive Date: 20090914
  Receipt Date: 20090914
  Transmission Date: 20100115
  Serious: Yes (Other)
  Sender: FDA-Public Use
  Company Number: None

PATIENT
  Age: 31 Year
  Sex: Female
  Weight: 55.7924 kg

DRUGS (1)
  1. MIRENA [Suspect]
     Indication: CONTRACEPTION
     Dates: start: 20051019, end: 20090709

REACTIONS (10)
  - ALOPECIA [None]
  - DIZZINESS [None]
  - FALLOPIAN TUBE DISORDER [None]
  - FATIGUE [None]
  - INFECTION [None]
  - IUD MIGRATION [None]
  - MULTI-ORGAN DISORDER [None]
  - NAUSEA [None]
  - SWELLING [None]
  - WEIGHT INCREASED [None]
